FAERS Safety Report 21823698 (Version 4)
Quarter: 2023Q1

REPORT INFORMATION
  Report Type: Spontaneous
  Country: US (occurrence: US)
  Receive Date: 20230105
  Receipt Date: 20230113
  Transmission Date: 20230417
  Serious: No
  Sender: FDA-Public Use
  Company Number: US-PFIZER INC-PV202300001357

PATIENT
  Age: 54 Year
  Sex: Female
  Weight: 83.01 kg

DRUGS (2)
  1. LEVOXYL [Suspect]
     Active Substance: LEVOTHYROXINE SODIUM
     Indication: Autoimmune thyroiditis
     Dosage: 112 UG, DAILY (112MCG DAILY IN MORNING BY MOUTH WITH LIOTHYRONINE)
     Route: 048
  2. LIOTHYRONINE [Concomitant]
     Active Substance: LIOTHYRONINE
     Indication: Thyroid disorder
     Dosage: 5 UG, (5MCG ONCE DAILY BY MOUTH)
     Route: 048

REACTIONS (12)
  - Alopecia [Not Recovered/Not Resolved]
  - Visual impairment [Recovering/Resolving]
  - Decreased appetite [Unknown]
  - Nervousness [Unknown]
  - Tremor [Unknown]
  - Dyspepsia [Not Recovered/Not Resolved]
  - Abdominal distension [Unknown]
  - Night blindness [Recovering/Resolving]
  - Feeling abnormal [Unknown]
  - Product supply issue [Unknown]
  - Product dose omission issue [Unknown]
  - Intentional product misuse [Unknown]

NARRATIVE: CASE EVENT DATE: 20230103
